FAERS Safety Report 5088093-2 (Version None)
Quarter: 2006Q3

REPORT INFORMATION
  Report Type: 
  Country: None (occurrence: None)
  Receive Date: 20060821
  Receipt Date: 20060808
  Transmission Date: 20061208
  Serious: Yes (Other)
  Sender: FDA-Public Use
  Company Number: 2006096556

PATIENT
  Age: 76 Year
  Sex: Male
  Weight: 82.5 kg

DRUGS (7)
  1. SUTENT [Suspect]
     Indication: MALIGNANT MELANOMA
     Dosage: 25 MG (25 MG, FREQUENCY: QD, INTERVAL: QD), ORAL
     Route: 048
     Dates: start: 20060728, end: 20060804
  2. CARBOPLATIN [Suspect]
     Indication: MALIGNANT MELANOMA
     Dosage: SEE IMAGE
     Route: 042
     Dates: start: 20060728, end: 20060728
  3. TAXOL [Suspect]
     Indication: MALIGNANT MELANOMA
     Dosage: SEE IMAGE
     Route: 042
     Dates: start: 20060728, end: 20060728
  4. PAROXETINE [Concomitant]
  5. ACETAMINOPHEN [Concomitant]
  6. LISINOPRIL [Concomitant]
  7. MULTIVITAMIN [Concomitant]

REACTIONS (1)
  - PAPILLOEDEMA [None]
